FAERS Safety Report 8579513-7 (Version None)
Quarter: 2012Q3

REPORT INFORMATION
  Report Type: 
  Country: None (occurrence: None)
  Receive Date: 20120808
  Receipt Date: 20120802
  Transmission Date: 20120928
  Serious: Yes (Other)
  Sender: FDA-Public Use
  Company Number: IT-GLAXOSMITHKLINE-B0821157A

PATIENT
  Sex: Male

DRUGS (4)
  1. VINBLASTINE SULFATE [Suspect]
     Indication: HODGKIN'S DISEASE
     Dosage: 10MG PER DAY
     Route: 042
     Dates: start: 20110629, end: 20110727
  2. ALKERAN [Suspect]
     Indication: HODGKIN'S DISEASE
     Dosage: 8MG PER DAY
     Dates: start: 20110629, end: 20110727
  3. PREDNISOLONE [Suspect]
     Indication: HODGKIN'S DISEASE
     Dosage: 50MG PER DAY
     Route: 048
     Dates: start: 20110629, end: 20110727
  4. MATULANE [Suspect]
     Indication: HODGKIN'S DISEASE
     Dosage: 100MG PER DAY
     Route: 048
     Dates: start: 20110629, end: 20110727

REACTIONS (1)
  - PNEUMONIA [None]
